FAERS Safety Report 19424262 (Version 2)
Quarter: 2021Q3

REPORT INFORMATION
  Report Type: Spontaneous
  Country: US (occurrence: US)
  Receive Date: 20210616
  Receipt Date: 20210914
  Transmission Date: 20211014
  Serious: No
  Sender: FDA-Public Use
  Company Number: US-SK LIFE SCIENCE, INC.-SKPVG-2021-000636

PATIENT

DRUGS (7)
  1. XCOPRI [Suspect]
     Active Substance: CENOBAMATE
     Indication: SEIZURE
     Dosage: UNK
     Route: 048
  2. ATIVAN [Suspect]
     Active Substance: LORAZEPAM
     Indication: PRODUCT USED FOR UNKNOWN INDICATION
     Route: 065
  3. AMIKACIN. [Interacting]
     Active Substance: AMIKACIN
     Indication: BRONCHIECTASIS
     Dosage: UNK, INTRAVENOUS ANTIBIOTICS THROUGH A PORT
     Route: 042
  4. TIGECYCLINE. [Interacting]
     Active Substance: TIGECYCLINE
     Indication: BRONCHIECTASIS
     Dosage: UNK, INTRAVENOUS ANTIBIOTICS THROUGH A PORT
     Route: 042
  5. XCOPRI [Suspect]
     Active Substance: CENOBAMATE
     Dosage: 100 MILLIGRAM, QD
     Route: 048
     Dates: start: 20201014
  6. ONFI [Suspect]
     Active Substance: CLOBAZAM
     Indication: PRODUCT USED FOR UNKNOWN INDICATION
     Route: 065
  7. LYRICA [Suspect]
     Active Substance: PREGABALIN
     Indication: PRODUCT USED FOR UNKNOWN INDICATION
     Route: 065

REACTIONS (4)
  - Sedation [Not Recovered/Not Resolved]
  - Lethargy [Unknown]
  - Somnolence [Not Recovered/Not Resolved]
  - Fatigue [Not Recovered/Not Resolved]
